FAERS Safety Report 25571786 (Version 2)
Quarter: 2025Q4

REPORT INFORMATION
  Report Type: Spontaneous
  Country: EU (occurrence: EU)
  Receive Date: 20250717
  Receipt Date: 20251001
  Transmission Date: 20260118
  Serious: Yes (Life-Threatening, Hospitalization)
  Sender: PFIZER
  Company Number: EU-ROCHE-10000323940

PATIENT
  Age: 57 Year
  Sex: Female
  Weight: 65 kg

DRUGS (31)
  1. CARBOPLATIN [Suspect]
     Active Substance: CARBOPLATIN
     Indication: Triple negative breast cancer
     Dosage: 1ST DAY OF 1ST CYCLE, ON 29NOV2024, PATIENT RECEIVED LAST DOSE OF ADMINISTRATION CUMULATIVE DOSE UNT
     Route: 042
     Dates: start: 20241018
  2. DOXORUBICIN HYDROCHLORIDE [Suspect]
     Active Substance: DOXORUBICIN HYDROCHLORIDE
     Indication: Triple negative breast cancer
     Dosage: 1ST DAY OF 1ST CYCLE, ON 07FEB2025, PATIENT RECEIVED LAST DOSE OF ADMINISTRATION CUMULATIVE DOSE UNT
     Route: 042
     Dates: start: 20241224
  3. TIRAGOLUMAB [Suspect]
     Active Substance: TIRAGOLUMAB
     Indication: Triple negative breast cancer
     Dosage: 1ST DAY OF 1ST CYCLE, ON 07FEB2025, PATIENT RECEIVED LAST DOSE OF ADMINISTRATION CUMULATIVE DOSE UNT
     Route: 042
     Dates: start: 20241018
  4. ATEZOLIZUMAB [Suspect]
     Active Substance: ATEZOLIZUMAB
     Indication: Triple negative breast cancer
     Dosage: 1ST DAY OF 1ST CYCLE, ON 07FEB2025, PATIENT RECEIVED LAST DOSE OF ADMINISTRATION CUMULATIVE DOSE UNT
     Route: 042
     Dates: start: 20241018
  5. PACLITAXEL [Suspect]
     Active Substance: PACLITAXEL
     Indication: Triple negative breast cancer
     Dosage: 1ST DAY OF 1ST CYCLE, ON 13DEC2024, PATIENT RECEIVED LAST DOSE OF ADMINISTRATION CUMULATIVE DOSE UNT
     Route: 042
     Dates: start: 20241018
  6. CYCLOPHOSPHAMIDE [Suspect]
     Active Substance: CYCLOPHOSPHAMIDE
     Indication: Triple negative breast cancer
     Dosage: 1ST DAY OF 1ST CYCLE, ON 07FEB2025, PATIENT RECEIVED LAST DOSE OF ADMINISTRATION CUMULATIVE DOSE UNT
     Route: 042
     Dates: start: 20241224
  7. HYDROCORTISONE [Concomitant]
     Active Substance: HYDROCORTISONE
     Dosage: 50 MG
     Route: 042
     Dates: start: 20250618, end: 20250622
  8. HYDROCORTISONE [Concomitant]
     Active Substance: HYDROCORTISONE
     Dosage: 50 MG, FREQ:.36 H;50 MG/48.5 ML
     Route: 042
  9. DEXTROSE MONOHYDRATE\POTASSIUM CHLORIDE\SODIUM CHLORIDE [Concomitant]
     Active Substance: DEXTROSE MONOHYDRATE\POTASSIUM CHLORIDE\SODIUM CHLORIDE
     Dosage: UNK, 1X/DAY
     Route: 042
  10. CALCIUM CHLORIDE [Concomitant]
     Active Substance: CALCIUM CHLORIDE
     Dosage: 0.1 G/ML (1GM/10 ML ), EVERY 24 HOURS
     Route: 042
  11. SODIUM CHLORIDE [Concomitant]
     Active Substance: SODIUM CHLORIDE
     Dosage: 48 ML, FREQ:4 H
     Route: 042
  12. IMOVANE [Concomitant]
     Active Substance: ZOPICLONE
     Dosage: 3.75 MG, AS NEEDED
     Route: 048
  13. SODIUM CITRATE\SODIUM LAURYL SULFOACETATE\SORBITOL [Concomitant]
     Active Substance: SODIUM CITRATE\SODIUM LAURYL SULFOACETATE\SORBITOL
     Dosage: 5 ML, 1X/DAY, FREQ: 24H
     Route: 054
  14. ACETAMINOPHEN [Concomitant]
     Active Substance: ACETAMINOPHEN
     Dosage: 1000 MG, 4X/DAY,
     Route: 042
  15. PIPERACILLIN SODIUM\TAZOBACTAM SODIUM [Concomitant]
     Active Substance: PIPERACILLIN SODIUM\TAZOBACTAM SODIUM
     Dosage: 4 G, 4X/DAY, 4 G/49 ML
     Route: 042
  16. LEVOTHYROXINE [Concomitant]
     Active Substance: LEVOTHYROXINE
     Dosage: 50 UG, 1X/DAY
  17. CAPECITABINE [Concomitant]
     Active Substance: CAPECITABINE
     Dosage: 2000 MG MORNING AND 1500 MG EVENING
     Dates: start: 202504
  18. CAPECITABINE [Concomitant]
     Active Substance: CAPECITABINE
     Dosage: UNK
     Dates: start: 202506
  19. POTASSIUM CHLORIDE [Concomitant]
     Active Substance: POTASSIUM CHLORIDE
     Dosage: 100 MG, FREQ:.33 D;
     Route: 048
  20. AMOXICILLIN\CLAVULANATE POTASSIUM [Concomitant]
     Active Substance: AMOXICILLIN\CLAVULANATE POTASSIUM
     Dosage: UNK, FREQ: 0.33 D
     Route: 048
  21. PERFALGAN [Concomitant]
     Active Substance: ACETAMINOPHEN
     Dosage: UNK
  22. FUROSEMIDE [Concomitant]
     Active Substance: FUROSEMIDE
     Dosage: UNK
     Dates: start: 20250624
  23. FERINJECT [Concomitant]
     Active Substance: FERRIC CARBOXYMALTOSE
     Dosage: 1 G
     Dates: start: 20250624
  24. FERINJECT [Concomitant]
     Active Substance: FERRIC CARBOXYMALTOSE
     Dosage: 500 MG
     Dates: start: 20250701
  25. FOLIC ACID [Concomitant]
     Active Substance: FOLIC ACID
     Dosage: UNK
  26. VITAMIN B12 [Concomitant]
     Active Substance: CYANOCOBALAMIN
     Dosage: UNK
  27. HUMAN RED BLOOD CELL [Concomitant]
     Active Substance: HUMAN RED BLOOD CELL
     Dosage: 1 UNIT, PACKED RED BLOOD CELLS
     Dates: start: 20250624
  28. HUMAN RED BLOOD CELL [Concomitant]
     Active Substance: HUMAN RED BLOOD CELL
     Dosage: 1 UNIT
     Dates: start: 20250625
  29. CEFTRIAXONE [Concomitant]
     Active Substance: CEFTRIAXONE
     Dosage: UNK
  30. METRONIDAZOLE [Concomitant]
     Active Substance: METRONIDAZOLE
     Dosage: UNK
  31. MEROPENEM [Concomitant]
     Active Substance: MEROPENEM
     Dosage: UNK

REACTIONS (2)
  - Adrenal insufficiency [Recovered/Resolved with Sequelae]
  - Off label use [Unknown]

NARRATIVE: CASE EVENT DATE: 20250616
